FAERS Safety Report 8821520 (Version 1)
Quarter: 2012Q4

REPORT INFORMATION
  Report Type: 
  Country: JP (occurrence: JP)
  Receive Date: 20121002
  Receipt Date: 20121002
  Transmission Date: 20130627
  Serious: Yes (Death)
  Sender: FDA-Public Use
  Company Number: JP-ASTELLAS-2012US008146

PATIENT
  Sex: Male

DRUGS (2)
  1. AMBISOME [Suspect]
     Indication: FUNGAEMIA
     Dosage: 150 mg, UID/QD
     Route: 065
     Dates: start: 201208
  2. CANCIDAS [Concomitant]
     Indication: PRODUCT USED FOR UNKNOWN INDICATION
     Dosage: UNK
     Route: 065
     Dates: start: 201207

REACTIONS (1)
  - Death [Fatal]
